FAERS Safety Report 7443127-2 (Version None)
Quarter: 2011Q2

REPORT INFORMATION
  Report Type: 
  Country: None (occurrence: None)
  Receive Date: 20110428
  Receipt Date: 20110426
  Transmission Date: 20111010
  Serious: Yes (Disabling, Other)
  Sender: FDA-Public Use
  Company Number: A0773235A

PATIENT
  Age: 32 Year
  Sex: Female
  Weight: 70.5 kg

DRUGS (1)
  1. TREXIMET [Suspect]
     Indication: MIGRAINE
     Dosage: 1TAB SINGLE DOSE
     Route: 048
     Dates: start: 20090301

REACTIONS (9)
  - SWELLING [None]
  - SKIN DISCOLOURATION [None]
  - BLISTER [None]
  - VOMITING [None]
  - SKIN LESION [None]
  - STEVENS-JOHNSON SYNDROME [None]
  - GAIT DISTURBANCE [None]
  - NAUSEA [None]
  - SKIN EXFOLIATION [None]
